FAERS Safety Report 16582050 (Version 1)
Quarter: 2019Q3

REPORT INFORMATION
  Report Type: Spontaneous
  Country: NL (occurrence: NL)
  Receive Date: 20190717
  Receipt Date: 20190717
  Transmission Date: 20191004
  Serious: Yes (Life-Threatening)
  Sender: FDA-Public Use
  Company Number: PHHY2019NL165089

PATIENT
  Sex: Male

DRUGS (4)
  1. CARVEDILOL SANDOZ [Suspect]
     Active Substance: CARVEDILOL
     Indication: PRODUCT USED FOR UNKNOWN INDICATION
     Dosage: 25 MG, BID
     Route: 065
  2. FUROSEMIDE. [Suspect]
     Active Substance: FUROSEMIDE
     Dosage: 80 OT, BID
     Route: 065
  3. CARVEDILOL SANDOZ [Suspect]
     Active Substance: CARVEDILOL
     Dosage: 50 MG, BID
     Route: 065
  4. FUROSEMIDE. [Suspect]
     Active Substance: FUROSEMIDE
     Indication: PRODUCT USED FOR UNKNOWN INDICATION
     Dosage: 40 OT, BID
     Route: 065

REACTIONS (1)
  - Cardiac failure [Unknown]
